FAERS Safety Report 8866498 (Version 1)
Quarter: 2012Q4

REPORT INFORMATION
  Report Type: 
  Country: US (occurrence: US)
  Receive Date: 20121025
  Receipt Date: 20121025
  Transmission Date: 20130627
  Serious: Yes (Death, Other)
  Sender: FDA-Public Use
  Company Number: US-ROCHE-1131521

PATIENT
  Sex: Male

DRUGS (5)
  1. RITUXAN [Suspect]
     Indication: HODGKIN^S DISEASE
     Route: 042
     Dates: start: 20040721, end: 20040811
  2. RITUXAN [Suspect]
     Indication: OFF LABEL USE
  3. GEMCITABINE [Concomitant]
  4. CHLORAMBUCIL [Concomitant]
  5. VP-16 [Concomitant]
     Route: 048

REACTIONS (9)
  - Cardiac arrest [Fatal]
  - Blood culture positive [Unknown]
  - Dyspnoea [Unknown]
  - Pyrexia [Unknown]
  - Cough [Unknown]
  - Asthenia [Unknown]
  - Constipation [Unknown]
  - Depression [Unknown]
  - Neuropathy peripheral [Unknown]
